FAERS Safety Report 6262957-6 (Version None)
Quarter: 2009Q3

REPORT INFORMATION
  Report Type: 
  Country: None (occurrence: None)
  Receive Date: 20090709
  Receipt Date: 20090706
  Transmission Date: 20100115
  Serious: Yes (Death)
  Sender: FDA-Public Use
  Company Number: PE-GILEAD-2009-0022960

PATIENT
  Age: 43 Year
  Sex: Male
  Weight: 54 kg

DRUGS (6)
  1. TRUVADA [Suspect]
     Indication: HIV INFECTION
     Route: 048
     Dates: start: 20090402, end: 20090416
  2. STOCRIN [Suspect]
     Indication: HIV INFECTION
     Route: 048
     Dates: start: 20090402, end: 20090416
  3. ISONIAZID [Concomitant]
     Indication: TUBERCULOSIS
     Dates: start: 20090318
  4. RIFAMPIN [Concomitant]
     Indication: TUBERCULOSIS
     Dates: start: 20090318
  5. PYRAZINAMIDE [Concomitant]
     Indication: TUBERCULOSIS
     Dates: start: 20090318
  6. ETHAMBUTOL [Concomitant]
     Indication: TUBERCULOSIS
     Dates: start: 20090318

REACTIONS (1)
  - PULMONARY TUBERCULOSIS [None]
